FAERS Safety Report 8054901-6 (Version None)
Quarter: 2012Q1

REPORT INFORMATION
  Report Type: 
  Country: None (occurrence: None)
  Receive Date: 20120119
  Receipt Date: 20120113
  Transmission Date: 20120608
  Serious: Yes (Hospitalization, Other)
  Sender: FDA-Public Use
  Company Number: US-SANOFI-AVENTIS-2012SA002883

PATIENT
  Sex: Male

DRUGS (4)
  1. HUMULIN 70/30 [Concomitant]
  2. SOLOSTAR [Suspect]
     Dates: start: 20110601
  3. LANTUS [Suspect]
     Dosage: DOSE:50 UNIT(S)
     Route: 058
     Dates: start: 20010101
  4. LANTUS [Suspect]
     Route: 058
     Dates: start: 20110601

REACTIONS (6)
  - CORONARY ARTERY DISEASE [None]
  - STAPHYLOCOCCAL INFECTION [None]
  - BLOOD GLUCOSE INCREASED [None]
  - METAMORPHOPSIA [None]
  - GLYCOSYLATED HAEMOGLOBIN INCREASED [None]
  - BLOOD GLUCOSE DECREASED [None]
